FAERS Safety Report 4526326-9 (Version None)
Quarter: 2004Q4

REPORT INFORMATION
  Report Type: 
  Country: None (occurrence: None)
  Receive Date: 20041210
  Receipt Date: 20041130
  Transmission Date: 20050328
  Serious: Yes (Hospitalization)
  Sender: FDA-Public Use
  Company Number: DE-2004-032788

PATIENT
  Age: 63 Year
  Sex: Female
  Weight: 55 kg

DRUGS (3)
  1. BETAFERON (INTEFERON BETA - 1B) INJECTION, 250UG [Suspect]
     Indication: MULTIPLE SCLEROSIS
     Dosage: SUBCUTANEOUS
     Route: 058
     Dates: start: 20010201, end: 20040922
  2. LEVOTHYROXINE SODIUM [Concomitant]
  3. SPASMEX (TROSPIUM CHLORIDE) [Concomitant]

REACTIONS (10)
  - ABDOMINAL WALL ABSCESS [None]
  - DIFFICULTY IN WALKING [None]
  - GINGIVITIS [None]
  - INJECTION SITE CELLULITIS [None]
  - INJECTION SITE INDURATION [None]
  - INJECTION SITE INFLAMMATION [None]
  - PAIN [None]
  - PERITONITIS [None]
  - SEROMA [None]
  - URINARY TRACT INFECTION [None]
